FAERS Safety Report 24327922 (Version 1)
Quarter: 2024Q3

REPORT INFORMATION
  Report Type: Spontaneous
  Country: US (occurrence: US)
  Receive Date: 20240917
  Receipt Date: 20240917
  Transmission Date: 20241016
  Serious: Yes (Other)
  Sender: BRISTOL MYERS SQUIBB
  Company Number: US-BRISTOL-MYERS SQUIBB COMPANY-2024-147592

PATIENT
  Age: 80 Year
  Sex: Female
  Weight: 59.87 kg

DRUGS (1)
  1. REVLIMID [Suspect]
     Active Substance: LENALIDOMIDE
     Indication: Plasma cell myeloma
     Dosage: ONCE DAILY FOR A 21-DAY CYCLE, 14 DAYS ON, OFF 7 DAYS
     Route: 048
     Dates: end: 20240507

REACTIONS (2)
  - Therapy non-responder [Unknown]
  - Off label use [Unknown]
